FAERS Safety Report 25755384 (Version 1)
Quarter: 2025Q3

REPORT INFORMATION
  Report Type: Spontaneous
  Country: GB (occurrence: GB)
  Receive Date: 20250903
  Receipt Date: 20250903
  Transmission Date: 20251020
  Serious: Yes (Other)
  Sender: Vantive US Healthcare
  Company Number: GB-VANTIVE-2025VAN004016

PATIENT
  Age: 69 Year
  Sex: Female

DRUGS (1)
  1. CALCIUM CL\DEXTROSE\MAGNESIUM CL\SODIUM BICAR\SODIUM CL\SODIUM LACT [Suspect]
     Active Substance: CALCIUM CHLORIDE\DEXTROSE MONOHYDRATE\MAGNESIUM CHLORIDE\SODIUM BICARBONATE\SODIUM CHLORIDE\SODIUM L
     Route: 033
     Dates: end: 20250827

REACTIONS (1)
  - Peritonitis [Recovered/Resolved]

NARRATIVE: CASE EVENT DATE: 20250801
